FAERS Safety Report 18660401 (Version 2)
Quarter: 2021Q1

REPORT INFORMATION
  Report Type: Report from Study
  Country: US (occurrence: US)
  Receive Date: 20201224
  Receipt Date: 20210114
  Transmission Date: 20210419
  Serious: Yes (Other)
  Sender: FDA-Public Use
  Company Number: US-BAYER-2020-272378

PATIENT
  Age: 79 Year
  Sex: Female

DRUGS (1)
  1. STIVARGA [Suspect]
     Active Substance: REGORAFENIB
     Indication: COLORECTAL CANCER
     Dosage: DAILY DOSE 80 MG
     Route: 048
     Dates: start: 20201207, end: 20201228

REACTIONS (6)
  - Adverse event [Recovered/Resolved]
  - Increased appetite [None]
  - Neuropathy peripheral [Not Recovered/Not Resolved]
  - Limb discomfort [Recovered/Resolved]
  - Blister [Recovered/Resolved]
  - Off label use [None]

NARRATIVE: CASE EVENT DATE: 20201207
